FAERS Safety Report 9712322 (Version 5)
Quarter: 2014Q1

REPORT INFORMATION
  Report Type: Report from Study
  Country: US (occurrence: US)
  Receive Date: 20131126
  Receipt Date: 20140204
  Transmission Date: 20141002
  Serious: Yes (Hospitalization, Other)
  Sender: FDA-Public Use
  Company Number: US-PURDUE-USA-2013-0109001

PATIENT
  Sex: Female

DRUGS (2)
  1. OXY CR TAB [Suspect]
     Indication: DRUG ABUSE
     Dosage: 240 MG, UNK
     Route: 048
     Dates: start: 20131105
  2. OXY CR TAB [Suspect]
     Dosage: 40 UNK, UNK
     Route: 048

REACTIONS (10)
  - Intentional overdose [Unknown]
  - Drug abuse [Unknown]
  - Cardiac disorder [Unknown]
  - Hospitalisation [Unknown]
  - Myocardial infarction [Unknown]
  - Loss of consciousness [Unknown]
  - Pulse abnormal [Unknown]
  - Hyporesponsive to stimuli [Unknown]
  - Wrong technique in drug usage process [Unknown]
  - Miosis [Unknown]
